FAERS Safety Report 7676203-X (Version None)
Quarter: 2011Q3

REPORT INFORMATION
  Report Type: 
  Country: None (occurrence: None)
  Receive Date: 20110805
  Receipt Date: 20110729
  Transmission Date: 20111222
  Serious: Yes (Death, Other)
  Sender: FDA-Public Use
  Company Number: 2011070226

PATIENT
  Age: 27 Year
  Sex: Female

DRUGS (1)
  1. CARISOPRODOL [Suspect]

REACTIONS (2)
  - HEPATIC NECROSIS [None]
  - ACCIDENTAL DEATH [None]
